FAERS Safety Report 20704731 (Version 1)
Quarter: 2022Q2

REPORT INFORMATION
  Report Type: Spontaneous
  Country: US (occurrence: None)
  Receive Date: 20220412
  Receipt Date: 20220412
  Transmission Date: 20220720
  Serious: Yes (Other)
  Sender: FDA-Public Use
  Company Number: None

PATIENT
  Age: 38 Year
  Sex: Female
  Weight: 65.7 kg

DRUGS (1)
  1. LYLEQ [Suspect]
     Active Substance: NORETHINDRONE
     Indication: Contraception
     Dosage: FREQUENCY : DAILY;?
     Route: 048
     Dates: start: 20220331, end: 20220412

REACTIONS (3)
  - Diarrhoea [None]
  - Nausea [None]
  - Abdominal pain upper [None]

NARRATIVE: CASE EVENT DATE: 20220410
